FAERS Safety Report 4276471-0 (Version None)
Quarter: 2004Q1

REPORT INFORMATION
  Report Type: 
  Country: None (occurrence: None)
  Receive Date: 20040120
  Receipt Date: 20040107
  Transmission Date: 20041129
  Serious: Yes (Life-Threatening)
  Sender: FDA-Public Use
  Company Number: HQ3776014AUG2002

PATIENT
  Sex: Female

DRUGS (5)
  1. RAPAMUNE [Suspect]
     Indication: IMMUNOSUPPRESSION
     Dosage: SEE IMAGE
  2. PROGRAF [Suspect]
     Indication: IMMUNOSUPPRESSION
     Dosage: DOSE ADJUSTED TO MAINTAIN A 12 HOUR
  3. ZENAPAX [Suspect]
     Indication: IMMUNOSUPPRESSION
     Dosage: 1 MG/KG 1X PER 2 WK, INTRAVENOUS
     Route: 042
  4. GANCICLOVIR SODIUM [Concomitant]
  5. INSULIN [Concomitant]

REACTIONS (5)
  - ANAEMIA [None]
  - INTRA-ABDOMINAL HAEMORRHAGE [None]
  - NEUTROPENIA [None]
  - RENAL IMPAIRMENT [None]
  - WEIGHT DECREASED [None]
